FAERS Safety Report 17617090 (Version 3)
Quarter: 2021Q1

REPORT INFORMATION
  Report Type: Report from Study
  Country: US (occurrence: US)
  Receive Date: 20200402
  Receipt Date: 20210322
  Transmission Date: 20210419
  Serious: No
  Sender: FDA-Public Use
  Company Number: US-SA-2020SA081201

PATIENT
  Age: 50 Year
  Sex: Female

DRUGS (6)
  1. BACLOFEN. [Concomitant]
     Active Substance: BACLOFEN
     Dosage: UNK
  2. DAPSONE. [Concomitant]
     Active Substance: DAPSONE
     Dosage: UNK
  3. MINOCYCLINE [Concomitant]
     Active Substance: MINOCYCLINE HYDROCHLORIDE
     Dosage: UNK
  4. DUPILUMAB [Suspect]
     Active Substance: DUPILUMAB
     Indication: DERMATITIS ATOPIC
     Dosage: 600 MG, 1X
     Route: 058
     Dates: start: 20200305, end: 20200305
  5. ADAPALENE. [Concomitant]
     Active Substance: ADAPALENE
     Dosage: UNK
  6. DUPILUMAB [Suspect]
     Active Substance: DUPILUMAB
     Dosage: 300 MG, QOW
     Route: 058
     Dates: start: 20200319

REACTIONS (8)
  - Taste disorder [Recovered/Resolved]
  - Injection site pruritus [Not Recovered/Not Resolved]
  - Paraesthesia oral [Recovered/Resolved]
  - Injection site swelling [Unknown]
  - Adverse drug reaction [Unknown]
  - Dermatitis atopic [Unknown]
  - Product use issue [Unknown]
  - Injection site exfoliation [Unknown]
